FAERS Safety Report 8172354-4 (Version None)
Quarter: 2012Q1

REPORT INFORMATION
  Report Type: 
  Country: None (occurrence: None)
  Receive Date: 20120229
  Receipt Date: 20120222
  Transmission Date: 20120608
  Serious: No
  Sender: FDA-Public Use
  Company Number: US-BIOGENIDEC-2012BI006976

PATIENT
  Age: 25 Year
  Sex: Female

DRUGS (1)
  1. TYSABRI [Suspect]
     Indication: MULTIPLE SCLEROSIS
     Route: 042
     Dates: start: 20070508, end: 20110603

REACTIONS (7)
  - HYPOAESTHESIA [None]
  - VOMITING [None]
  - FALL [None]
  - MOTION SICKNESS [None]
  - WEIGHT DECREASED [None]
  - NAUSEA [None]
  - BALANCE DISORDER [None]
